FAERS Safety Report 9158518 (Version 1)
Quarter: 2013Q1

REPORT INFORMATION
  Report Type: Spontaneous
  Country: US (occurrence: US)
  Receive Date: 20130312
  Receipt Date: 20130312
  Transmission Date: 20140127
  Serious: Yes (Life-Threatening)
  Sender: FDA-Public Use
  Company Number: CHPA2010US04769

PATIENT
  Age: 63 Year
  Sex: Female
  Weight: 73.16 kg

DRUGS (2)
  1. BENEFIBER STICK PACKS [Suspect]
     Dosage: 2-3 SERVINGS, PER DAY
     Route: 048
  2. FIBERCON [Concomitant]

REACTIONS (8)
  - Feeling abnormal [Unknown]
  - Malaise [Recovered/Resolved]
  - Vomiting [Recovered/Resolved]
  - Diarrhoea [Recovered/Resolved]
  - Retching [Recovered/Resolved]
  - Abdominal pain [Recovered/Resolved]
  - Flatulence [Recovered/Resolved]
  - Abdominal distension [Recovered/Resolved]
